FAERS Safety Report 6700366-3 (Version None)
Quarter: 2010Q2

REPORT INFORMATION
  Report Type: 
  Country: None (occurrence: None)
  Receive Date: 20100428
  Receipt Date: 20100413
  Transmission Date: 20101027
  Serious: No
  Sender: FDA-Public Use
  Company Number: US-B.I. PHARMACEUTICALS,INC./RIDGEFIELD-2010-BP-04334BP

PATIENT
  Age: 30 Year
  Sex: Female

DRUGS (3)
  1. ZANTAC 75 [Suspect]
     Indication: HYPERSENSITIVITY
     Dosage: 75 MG
     Route: 048
     Dates: start: 20100413
  2. VALIUM [Concomitant]
     Indication: OBSESSIVE-COMPULSIVE DISORDER
     Dates: start: 20070101
  3. BENADRYL [Concomitant]
     Indication: HYPERSENSITIVITY

REACTIONS (3)
  - ABDOMINAL PAIN UPPER [None]
  - CHEST PAIN [None]
  - DIZZINESS [None]
